FAERS Safety Report 25287391 (Version 2)
Quarter: 2025Q2

REPORT INFORMATION
  Report Type: Report from Study
  Country: CA (occurrence: CA)
  Receive Date: 20250509
  Receipt Date: 20250509
  Transmission Date: 20250717
  Serious: Yes (Other)
  Sender: SANDOZ
  Company Number: CA-SANDOZ-SDZ2023CA019671

PATIENT
  Age: 59 Year
  Sex: Female

DRUGS (2)
  1. HYRIMOZ [Suspect]
     Active Substance: ADALIMUMAB-ADAZ
     Indication: Crohn^s disease
     Dosage: 40 MG, Q2W
     Route: 058
     Dates: start: 20210920
  2. HYRIMOZ [Suspect]
     Active Substance: ADALIMUMAB-ADAZ
     Route: 058
     Dates: start: 202305

REACTIONS (9)
  - Ovarian disorder [Unknown]
  - Gastrointestinal disorder [Unknown]
  - Post procedural infection [Unknown]
  - Post procedural complication [Unknown]
  - Wound secretion [Unknown]
  - Abscess [Unknown]
  - Diarrhoea [Unknown]
  - General physical health deterioration [Unknown]
  - Impaired healing [Unknown]

NARRATIVE: CASE EVENT DATE: 20250401
